FAERS Safety Report 4571634-9 (Version None)
Quarter: 2005Q1

REPORT INFORMATION
  Report Type: 
  Country: None (occurrence: None)
  Receive Date: 20050207
  Receipt Date: 20050119
  Transmission Date: 20050727
  Serious: No
  Sender: FDA-Public Use
  Company Number: JP-BRISTOL-MYERS SQUIBB COMPANY-12837720

PATIENT
  Age: 59 Year
  Sex: Male

DRUGS (2)
  1. MEVALOTIN TABS 10 MG [Suspect]
     Indication: HYPERLIPIDAEMIA
     Route: 048
     Dates: start: 20040106, end: 20040722
  2. THYRADIN S [Suspect]
     Indication: HYPOTHYROIDISM
     Route: 048
     Dates: start: 20030524

REACTIONS (2)
  - METABOLIC DISORDER [None]
  - NEPHROGENIC DIABETES INSIPIDUS [None]
